FAERS Safety Report 10153674 (Version 1)
Quarter: 2014Q2

REPORT INFORMATION
  Report Type: Spontaneous
  Country: US (occurrence: US)
  Receive Date: 20140506
  Receipt Date: 20140506
  Transmission Date: 20141212
  Serious: No
  Sender: FDA-Public Use
  Company Number: US-009507513-1405USA002548

PATIENT
  Sex: Female

DRUGS (4)
  1. PROVENTIL [Suspect]
     Dosage: UNK
     Route: 055
  2. SPIRIVA [Concomitant]
  3. QVAR [Concomitant]
  4. GABAPENTIN [Concomitant]

REACTIONS (3)
  - Dyspnoea [Unknown]
  - Gait disturbance [Unknown]
  - Speech disorder [Unknown]
